FAERS Safety Report 4414499-8 (Version None)
Quarter: 2004Q3

REPORT INFORMATION
  Report Type: 
  Country: None (occurrence: None)
  Receive Date: 20040702
  Receipt Date: 20030521
  Transmission Date: 20050211
  Serious: Yes (Other)
  Sender: FDA-Public Use
  Company Number: 338581

PATIENT
  Sex: Female

DRUGS (7)
  1. KLONOPIN [Suspect]
     Indication: AGORAPHOBIA
     Dosage: 0.5 MG 3 PER DAY ORAL
     Route: 048
     Dates: start: 19800615
  2. KLONOPIN [Suspect]
     Indication: ANXIETY
     Dosage: 0.5 MG 3 PER DAY ORAL
     Route: 048
     Dates: start: 19800615
  3. KLONOPIN [Suspect]
     Indication: DIZZINESS
     Dosage: 0.5 MG 3 PER DAY ORAL
     Route: 048
     Dates: start: 19800615
  4. ATIVAN [Suspect]
     Indication: AGORAPHOBIA
  5. ATIVAN [Suspect]
     Indication: ANXIETY
  6. ATIVAN [Suspect]
     Indication: DIZZINESS
  7. PAXIL [Concomitant]

REACTIONS (4)
  - DIZZINESS [None]
  - DRUG WITHDRAWAL SYNDROME [None]
  - NERVOUSNESS [None]
  - PANIC ATTACK [None]
